FAERS Safety Report 10732071 (Version 1)
Quarter: 2015Q1

REPORT INFORMATION
  Report Type: Spontaneous
  Country: US (occurrence: None)
  Receive Date: 20150121
  Receipt Date: 20150121
  Transmission Date: 20150721
  Serious: Yes (Disabling)
  Sender: FDA-Public Use
  Company Number: None

PATIENT
  Age: 42 Year
  Sex: Female
  Weight: 72.58 kg

DRUGS (1)
  1. CRESTOR [Suspect]
     Active Substance: ROSUVASTATIN CALCIUM
     Indication: BLOOD CHOLESTEROL INCREASED
     Dosage: 1 A DAY, ONCE DAILY
     Route: 048
     Dates: start: 2011, end: 2013

REACTIONS (13)
  - Fibromyalgia [None]
  - Insomnia [None]
  - Arthralgia [None]
  - Neck pain [None]
  - Spinal pain [None]
  - Pain in extremity [None]
  - Muscle spasms [None]
  - Back pain [None]
  - Hypoaesthesia [None]
  - Neuralgia [None]
  - Hypertension [None]
  - Musculoskeletal pain [None]
  - Myalgia [None]
